FAERS Safety Report 5094453-6 (Version None)
Quarter: 2006Q3

REPORT INFORMATION
  Report Type: 
  Country: None (occurrence: None)
  Receive Date: 20060731
  Receipt Date: 20060425
  Transmission Date: 20061208
  Serious: No
  Sender: FDA-Public Use
  Company Number: 2006PV012704

PATIENT
  Age: 48 Year
  Sex: Male
  Weight: 128.368 kg

DRUGS (5)
  1. BYETTA [Suspect]
     Indication: DIABETES MELLITUS NON-INSULIN-DEPENDENT
     Dosage: 5 MCG;BID;SC
     Route: 058
     Dates: start: 20060410
  2. NIASPAN [Suspect]
     Indication: DRUG USE FOR UNKNOWN INDICATION
     Dosage: 5 MCG;BID;SC
     Route: 058
     Dates: start: 20060410
  3. METFORMIN HCL [Concomitant]
  4. AMARYL [Concomitant]
  5. ACTOS/USA/ [Concomitant]

REACTIONS (1)
  - FLUSHING [None]
